FAERS Safety Report 9935636 (Version 1)
Quarter: 2014Q1

REPORT INFORMATION
  Report Type: Spontaneous
  Country: CH (occurrence: CH)
  Receive Date: 20140228
  Receipt Date: 20140228
  Transmission Date: 20141002
  Serious: Yes (Hospitalization)
  Sender: FDA-Public Use
  Company Number: PHHY2014CH023049

PATIENT
  Age: 66 Year
  Sex: Female
  Weight: 65 kg

DRUGS (13)
  1. 5-FLUOROURACIL [Suspect]
     Indication: PANCREATIC CARCINOMA RECURRENT
     Dosage: 600 MG, DAY 01
     Route: 040
     Dates: start: 20140122, end: 20140122
  2. 5-FLUOROURACIL [Suspect]
     Dosage: 2000 MG, CONTINUOUSLY OVER 24H DAY 1+2
     Route: 042
     Dates: start: 20140122, end: 20140123
  3. LEUCOVORIN CALCIUM [Suspect]
     Indication: PANCREATIC CARCINOMA RECURRENT
     Dosage: 200 MG, ON DAY 01
     Route: 042
     Dates: start: 20140122, end: 20140122
  4. ELOXATIN [Suspect]
     Indication: PANCREATIC CARCINOMA RECURRENT
     Dosage: 140 MG, ON DAY 01
     Route: 042
     Dates: start: 20140122, end: 20140122
  5. CAMPTO [Suspect]
     Indication: PANCREATIC CARCINOMA RECURRENT
     Dosage: 300 MG, ON DAY 01
     Route: 042
     Dates: start: 20140122, end: 20140122
  6. COAPROVEL [Concomitant]
     Dosage: 1 DF, QD
     Route: 048
  7. SALICYLIC ACID [Concomitant]
     Dosage: 100 MG, QD
     Route: 048
  8. DIAMICRON [Concomitant]
     Dosage: 60 MG, QD
     Route: 048
  9. BELOC [Concomitant]
     Dosage: 50 MG, QD
     Route: 048
  10. SORTIS [Concomitant]
     Dosage: 20 MG, QD
     Route: 048
  11. AMLODIPIN//AMLODIPINE [Concomitant]
     Dosage: 10 MG, QD
     Route: 048
  12. PANTOZOL [Concomitant]
     Dosage: 20 MG, QD
     Route: 048
  13. JANUMET [Concomitant]
     Dosage: 1 DF, BID
     Route: 048

REACTIONS (6)
  - Neutropenic colitis [Recovering/Resolving]
  - Abdominal pain [Unknown]
  - Febrile neutropenia [Recovered/Resolved]
  - Diarrhoea [Recovering/Resolving]
  - Vomiting [Recovered/Resolved]
  - Nausea [Recovering/Resolving]
